FAERS Safety Report 4281233-4 (Version None)
Quarter: 2004Q1

REPORT INFORMATION
  Report Type: 
  Country: None (occurrence: None)
  Receive Date: 20040129
  Receipt Date: 20040122
  Transmission Date: 20041129
  Serious: Yes (Other)
  Sender: FDA-Public Use
  Company Number: WAES 0401GBR00183

PATIENT
  Age: 66 Year
  Sex: Female
  Weight: 63 kg

DRUGS (6)
  1. DERMATOLOGIC (UNSPECIFIED) [Concomitant]
     Dates: start: 20010130
  2. ESTRADIOL AND ESTRIOL AND ESTRONE [Concomitant]
     Dates: start: 20010518
  3. FEXOFENADINE HYDROCHLORIDE [Concomitant]
     Dates: start: 20020725
  4. LEVOTHYROXINE SODIUM [Concomitant]
     Dates: start: 20010130
  5. PREDNISOLONE [Concomitant]
     Dates: start: 20020814
  6. VIOXX [Suspect]
     Indication: POLYMYALGIA
     Route: 048
     Dates: start: 20010212, end: 20030321

REACTIONS (2)
  - DERMATITIS [None]
  - PHOTOSENSITIVITY REACTION [None]
